APPROVED DRUG PRODUCT: FLUPHENAZINE HYDROCHLORIDE
Active Ingredient: FLUPHENAZINE HYDROCHLORIDE
Strength: 5MG
Dosage Form/Route: TABLET;ORAL
Application: A218055 | Product #003 | TE Code: AB
Applicant: AUROBINDO PHARMA LTD
Approved: Aug 18, 2023 | RLD: No | RS: No | Type: RX